FAERS Safety Report 10672492 (Version 1)
Quarter: 2014Q4

REPORT INFORMATION
  Report Type: Spontaneous
  Country: US (occurrence: None)
  Receive Date: 20141222
  Receipt Date: 20141222
  Transmission Date: 20150529
  Serious: Yes (Other)
  Sender: FDA-Public Use
  Company Number: None

PATIENT
  Age: 67 Year
  Sex: Male

DRUGS (1)
  1. CLONAZEPAM. [Suspect]
     Active Substance: CLONAZEPAM
     Indication: ANXIETY
     Dosage: 1  TID ORAL
     Route: 048
     Dates: start: 20141111, end: 20141220

REACTIONS (4)
  - Therapeutic product ineffective [None]
  - Product substitution issue [None]
  - Product quality issue [None]
  - Product measured potency issue [None]

NARRATIVE: CASE EVENT DATE: 20141220
